FAERS Safety Report 25385857 (Version 1)
Quarter: 2025Q2

REPORT INFORMATION
  Report Type: Spontaneous
  Country: US (occurrence: None)
  Receive Date: 20250531
  Receipt Date: 20250531
  Transmission Date: 20250716
  Serious: Yes (Hospitalization)
  Sender: FDA-CTU
  Company Number: None

PATIENT
  Age: 43 Year
  Sex: Female
  Weight: 65.25 kg

DRUGS (9)
  1. ESCITALOPRAM [Suspect]
     Active Substance: ESCITALOPRAM OXALATE
  2. TRAZODONE [Suspect]
     Active Substance: TRAZODONE HYDROCHLORIDE
  3. MIRTAZAPINE [Suspect]
     Active Substance: MIRTAZAPINE
  4. HYDROXYZINE [Suspect]
     Active Substance: HYDROXYZINE HYDROCHLORIDE
  5. GABAPENTIN [Suspect]
     Active Substance: GABAPENTIN
  6. KLONOPIN [Suspect]
     Active Substance: CLONAZEPAM
  7. DIAZEPAM [Suspect]
     Active Substance: DIAZEPAM
  8. SEROQUEL [Suspect]
     Active Substance: QUETIAPINE FUMARATE
  9. HALDOL [Suspect]
     Active Substance: HALOPERIDOL

REACTIONS (4)
  - Drug withdrawal syndrome [None]
  - Depersonalisation/derealisation disorder [None]
  - Derealisation [None]
  - Neuralgia [None]

NARRATIVE: CASE EVENT DATE: 20241018
